FAERS Safety Report 4845191-3 (Version None)
Quarter: 2005Q4

REPORT INFORMATION
  Report Type: 
  Country: None (occurrence: None)
  Receive Date: 20051205
  Receipt Date: 20051121
  Transmission Date: 20060501
  Serious: Yes (Other)
  Sender: FDA-Public Use
  Company Number: CA-ROCHE-425426

PATIENT
  Age: 23 Year
  Sex: Male

DRUGS (7)
  1. DIAZEPAM [Suspect]
     Indication: DRUG USE FOR UNKNOWN INDICATION
     Route: 048
  2. DIAZEPAM [Suspect]
     Dosage: HS
     Route: 048
  3. DIAZEPAM [Suspect]
     Dosage: RECHALLENGE THERAPY.
     Route: 048
  4. AMITRIPTYLINE HCL [Suspect]
     Indication: DRUG USE FOR UNKNOWN INDICATION
     Route: 048
  5. AMITRIPTYLINE HCL [Suspect]
     Dosage: HS
     Route: 048
  6. AMITRIPTYLINE HCL [Suspect]
     Dosage: RECHALLENGE THERAPY.
     Route: 048
  7. ETHANOL [Suspect]
     Dosage: 2 BEERS.
     Route: 048

REACTIONS (6)
  - ABNORMAL BEHAVIOUR [None]
  - DISSOCIATION [None]
  - DISSOCIATIVE FUGUE [None]
  - INJURY [None]
  - LOSS OF CONSCIOUSNESS [None]
  - PHYSICAL ASSAULT [None]
